FAERS Safety Report 4496824-5 (Version None)
Quarter: 2004Q4

REPORT INFORMATION
  Report Type: 
  Country: None (occurrence: None)
  Receive Date: 20041109
  Receipt Date: 20041029
  Transmission Date: 20050328
  Serious: Yes (Congenital Anomaly)
  Sender: FDA-Public Use
  Company Number: IE-NOVOPROD-240201

PATIENT
  Age: 0 Day
  Sex: Female
  Weight: 4 kg

DRUGS (19)
  1. NOVORAPID PENFILL 3.0 ML [Suspect]
     Dosage: 48 IU, QD
     Route: 015
     Dates: start: 20040312
  2. PROTAPHAN PENFILL [Concomitant]
     Indication: DIABETES MELLITUS INSULIN-DEPENDENT
     Dosage: 70 IU, QD
     Route: 015
     Dates: start: 20040312
  3. PROSTINE [Concomitant]
     Indication: LABOUR INDUCTION
     Dosage: 2 MG, QD
     Route: 015
     Dates: start: 20041018, end: 20041018
  4. PROSTINE [Concomitant]
     Dosage: 4 MG, QD
     Route: 015
     Dates: start: 20041019, end: 20041019
  5. PROSTINE [Concomitant]
     Dosage: 2 MG, QD
     Route: 015
     Dates: start: 20041024, end: 20041024
  6. PETHIDINE [Concomitant]
     Dosage: 75 MG, QD
     Route: 015
     Dates: start: 20041025, end: 20041025
  7. PHENERGAN ^MAY + BAKER^ [Concomitant]
     Dosage: 25 MG, QD
     Route: 015
     Dates: start: 20041025, end: 20041025
  8. SYNTOCINON [Concomitant]
     Dosage: 10 U, QD
     Route: 015
     Dates: start: 20041025, end: 20041025
  9. SODIUM CHLORIDE INJ [Concomitant]
     Dosage: 1 L, QD
     Route: 015
     Dates: start: 20041025, end: 20041025
  10. DEXTROSE [Concomitant]
     Dosage: 80 MG/KG/DAY
     Route: 042
     Dates: start: 20041025
  11. BENZYLPENICILLIN [Concomitant]
     Dosage: UNK, SINGLE
     Route: 015
     Dates: start: 20041025, end: 20041025
  12. MARCAINE [Concomitant]
     Dosage: 3 ML, 0.5 %
     Route: 015
     Dates: start: 20041025, end: 20041025
  13. MARCAINE [Concomitant]
     Dosage: 5 ML, 0.25 %
     Route: 015
     Dates: start: 20041025, end: 20041025
  14. FENTANYL [Concomitant]
     Dosage: 10 ML, 0.2%
     Route: 015
     Dates: start: 20041025, end: 20041025
  15. FENTANYL [Concomitant]
     Dosage: 2 UG/ML
     Route: 015
  16. CHIROCAINE [Concomitant]
     Dosage: .0625 %, UNK
     Route: 015
  17. ACETAMINOPHEN [Concomitant]
     Dosage: 1 G, SINGLE
     Dates: start: 20041025, end: 20041025
  18. VOLTAREN [Concomitant]
     Dosage: 100 MG, PRN
     Dates: start: 20041025
  19. AUGMENTIN '125' [Concomitant]
     Dosage: 1.2 G, QD
     Route: 015
     Dates: start: 20041025

REACTIONS (3)
  - ANKYLOGLOSSIA CONGENITAL [None]
  - DRUG EXPOSURE DURING PREGNANCY [None]
  - HYPOGLYCAEMIA NEONATAL [None]
